FAERS Safety Report 19970681 (Version 2)
Quarter: 2021Q4

REPORT INFORMATION
  Report Type: Report from Study
  Country: None (occurrence: PT)
  Receive Date: 20211020
  Receipt Date: 20211025
  Transmission Date: 20220303
  Serious: Yes (Disabling)
  Sender: FDA-Public Use
  Company Number: PT-ABBVIE-21K-130-4126034-00

PATIENT
  Age: 76 Year
  Sex: Male

DRUGS (7)
  1. CARBIDOPA\LEVODOPA [Suspect]
     Active Substance: CARBIDOPA\LEVODOPA
     Indication: Parkinson^s disease
     Dosage: 20 MG+5 MG, MORN:12CC;MAINT:3.5CC/H;EXTRA:1CC
     Route: 050
     Dates: start: 20210921, end: 2021
  2. CARBIDOPA\LEVODOPA [Suspect]
     Active Substance: CARBIDOPA\LEVODOPA
     Dosage: 20 MG+5 MG, MORN:15CC;MAINT:4.7CC/H;EXTRA:1CC
     Route: 050
     Dates: start: 2021, end: 20211019
  3. CARBIDOPA\LEVODOPA [Suspect]
     Active Substance: CARBIDOPA\LEVODOPA
     Dosage: 20 MG+5 MG, MORN:15CC;MAINT:4.6CC/H;EXTRA:1CC
     Route: 050
     Dates: start: 202110
  4. BENSERAZIDE HYDROCHLORIDE\LEVODOPA [Concomitant]
     Active Substance: BENSERAZIDE HYDROCHLORIDE\LEVODOPA
     Indication: Product used for unknown indication
     Dosage: MADOPAR 250, 1+1/2 TABLET AT 9H, 13H AND 17H
     Dates: end: 202109
  5. OPICAPONE [Concomitant]
     Active Substance: OPICAPONE
     Indication: Product used for unknown indication
     Dosage: AT NIGHT
  6. RIVOTRIL [Concomitant]
     Active Substance: CLONAZEPAM
     Indication: Product used for unknown indication
     Dosage: AT NIGHT
  7. BENSERAZIDE HYDROCHLORIDE\LEVODOPA [Concomitant]
     Active Substance: BENSERAZIDE HYDROCHLORIDE\LEVODOPA
     Indication: Product used for unknown indication
     Dosage: AT 9PM
     Dates: start: 202109, end: 202110

REACTIONS (7)
  - Mobility decreased [Not Recovered/Not Resolved]
  - Dyskinesia [Recovering/Resolving]
  - Mental disorder [Not Recovered/Not Resolved]
  - Restlessness [Recovering/Resolving]
  - Agitation [Recovering/Resolving]
  - Unevaluable event [Recovering/Resolving]
  - Intentional medical device removal by patient [Unknown]

NARRATIVE: CASE EVENT DATE: 20210101
